FAERS Safety Report 9464210 (Version 1)
Quarter: 2013Q3

REPORT INFORMATION
  Report Type: Spontaneous
  Country: NL (occurrence: NL)
  Receive Date: 20130819
  Receipt Date: 20130819
  Transmission Date: 20140515
  Serious: Yes (Death, Hospitalization)
  Sender: FDA-Public Use
  Company Number: NL-MYLANLABS-2013S1017964

PATIENT
  Age: 61 Year
  Sex: Female

DRUGS (2)
  1. THIAMAZOLE [Suspect]
     Indication: BASEDOW^S DISEASE
     Route: 065
  2. AMOXI-CLAVULANICO [Concomitant]
     Route: 065

REACTIONS (10)
  - Agranulocytosis [Fatal]
  - Sepsis [Unknown]
  - Cellulitis [Unknown]
  - Erythema [Unknown]
  - Swelling [Unknown]
  - Blister [Unknown]
  - Necrosis [Unknown]
  - Pneumonia [Unknown]
  - Rales [Unknown]
  - Dyspnoea [Unknown]
